FAERS Safety Report 4485612-1 (Version None)
Quarter: 2004Q4

REPORT INFORMATION
  Report Type: 
  Country: None (occurrence: None)
  Receive Date: 20041022
  Receipt Date: 20041011
  Transmission Date: 20050328
  Serious: Yes (Hospitalization)
  Sender: FDA-Public Use
  Company Number: S04-USA-06270-01

PATIENT
  Age: 54 Year
  Sex: Male

DRUGS (19)
  1. CELEXA [Suspect]
     Indication: ANXIETY
     Dosage: 10 MG QD PO
     Route: 048
     Dates: start: 20030101, end: 20040701
  2. CELEXA [Suspect]
     Indication: DEPRESSION
     Dosage: 10 MG QD PO
     Route: 048
     Dates: start: 20030101, end: 20040701
  3. CELEXA [Suspect]
     Indication: ANXIETY
     Dosage: 20 MG QD PO
     Route: 048
     Dates: start: 20040701, end: 20040815
  4. CELEXA [Suspect]
     Indication: DEPRESSION
     Dosage: 20 MG QD PO
     Route: 048
     Dates: start: 20040701, end: 20040815
  5. CELEXA [Suspect]
     Indication: ANXIETY
     Dosage: 40 MG QD PO
     Route: 048
     Dates: start: 20040816, end: 20040901
  6. CELEXA [Suspect]
     Indication: DEPRESSION
     Dosage: 40 MG QD PO
     Route: 048
     Dates: start: 20040816, end: 20040901
  7. CELEXA [Suspect]
     Indication: ANXIETY
     Dosage: 60 MG QD PO
     Route: 048
     Dates: start: 20040901, end: 20040901
  8. CELEXA [Suspect]
     Indication: DEPRESSION
     Dosage: 60 MG QD PO
     Route: 048
     Dates: start: 20040901, end: 20040901
  9. CELEXA [Suspect]
     Indication: ANXIETY
     Dosage: 40 MG QD PO
     Route: 048
     Dates: start: 20040901
  10. CELEXA [Suspect]
     Indication: DEPRESSION
     Dosage: 40 MG QD PO
     Route: 048
     Dates: start: 20040901
  11. INTERFERON [Suspect]
     Indication: MALIGNANT MELANOMA
     Dates: start: 20040816, end: 20040909
  12. STUDY INJECTION (NOS) [Suspect]
  13. AVAPRO [Concomitant]
  14. COMPAZINE [Concomitant]
  15. OXYCODONE [Concomitant]
  16. BACILLUS CALMETTE GEURIN [Concomitant]
  17. KLONOPIN [Concomitant]
  18. REMERON [Concomitant]
  19. BACILLUS CALMETTE GUERIN [Concomitant]

REACTIONS (18)
  - ALANINE AMINOTRANSFERASE INCREASED [None]
  - ASPARTATE AMINOTRANSFERASE INCREASED [None]
  - BLOOD CALCIUM DECREASED [None]
  - BLOOD CHLORIDE INCREASED [None]
  - BLOOD PHOSPHORUS DECREASED [None]
  - CHILLS [None]
  - DEPRESSION [None]
  - DRUG INTOLERANCE [None]
  - FEELING ABNORMAL [None]
  - HYPOTENSION [None]
  - MALIGNANT MELANOMA [None]
  - MYOCLONUS [None]
  - PYREXIA [None]
  - RASH PRURITIC [None]
  - REFUSAL OF TREATMENT BY PATIENT [None]
  - STRESS SYMPTOMS [None]
  - SYNCOPE [None]
  - TREMOR [None]
